FAERS Safety Report 8242002 (Version 3)
Quarter: 2013Q4

REPORT INFORMATION
  Report Type: Spontaneous
  Country: CA (occurrence: CA)
  Receive Date: 20111111
  Receipt Date: 20131114
  Transmission Date: 20140711
  Serious: Yes (Death, Other)
  Sender: FDA-Public Use
  Company Number: CA-ASTRAZENECA-2011SE67387

PATIENT
  Age: 9 Year
  Sex: Male

DRUGS (33)
  1. SEROQUEL XR [Suspect]
     Route: 048
     Dates: start: 2007
  2. SEROQUEL XR [Suspect]
     Route: 048
  3. SEROQUEL XR [Suspect]
     Route: 048
  4. APO-SERTRALINE [Suspect]
     Route: 065
  5. APO-SERTRALINE [Suspect]
     Route: 065
  6. APO-SERTRALINE [Suspect]
     Route: 065
  7. BIPHENTIN [Suspect]
     Route: 065
     Dates: start: 2008
  8. BIPHENTIN [Suspect]
     Route: 065
     Dates: start: 2007
  9. APO-HALOPERIDOL [Suspect]
     Route: 065
     Dates: start: 2007
  10. CLONIDINE [Suspect]
     Route: 065
  11. CLONIDINE [Suspect]
  12. CLONIDINE [Suspect]
     Dosage: 0.1 MG 1/4
     Route: 065
     Dates: start: 2007
  13. CLONIDINE [Suspect]
     Route: 065
  14. CLONIDINE [Suspect]
     Route: 065
  15. FLOVENT HFA [Suspect]
     Route: 055
  16. FLOVENT HFA [Suspect]
     Dosage: 125 MCG
     Route: 055
     Dates: start: 2008
  17. FLOVENT HFA [Suspect]
     Dosage: 250 MCG, UNKNOWN FREQUENCY
     Route: 055
  18. NASONEX [Suspect]
     Route: 045
  19. NASONEX [Suspect]
     Dosage: 50 MCG
     Route: 045
     Dates: start: 2008
  20. NASONEX [Suspect]
     Route: 045
  21. NASONEX [Suspect]
     Route: 065
  22. RATIO SALBUTAMOL HFA [Suspect]
     Route: 055
  23. RATIO SALBUTAMOL HFA [Suspect]
     Dosage: 100 MCG 2 INHALATIONS
     Route: 055
  24. RATIO SALBUTAMOL HFA [Suspect]
     Dosage: 200 MCG, UNKNOWN FREQUENCY
     Route: 055
  25. RATIO SALBUTAMOL HFA [Suspect]
     Dosage: 100 MCG, UNKNOWN FREQUENCY
     Route: 065
  26. STRATTERA [Suspect]
     Route: 065
     Dates: start: 2007
  27. STRATTERA [Suspect]
     Dosage: 40MG,UNKNOWN FREQUECY
     Route: 065
  28. STRATTERA [Suspect]
     Route: 065
  29. STRATTERA [Suspect]
     Route: 065
  30. ZYPREXA [Suspect]
     Route: 065
  31. ZYPREXA [Suspect]
     Route: 065
  32. ZYPREXA [Suspect]
     Route: 065
     Dates: start: 2007
  33. ZYPREXA [Suspect]
     Dosage: 2.5MG, UNKNOWN FREQUENCY
     Route: 065

REACTIONS (8)
  - Death [Fatal]
  - Dysstasia [Unknown]
  - Eye movement disorder [Unknown]
  - Gastric dilatation [Unknown]
  - Gastrointestinal sounds abnormal [Unknown]
  - Weight increased [Unknown]
  - Dizziness [Unknown]
  - Dyspnoea [Unknown]
